FAERS Safety Report 8468748-X (Version None)
Quarter: 2012Q2

REPORT INFORMATION
  Report Type: 
  Country: None (occurrence: None)
  Receive Date: 20120626
  Receipt Date: 20120613
  Transmission Date: 20120825
  Serious: Yes (Hospitalization, Other)
  Sender: FDA-Public Use
  Company Number: US-ROCHE-791128

PATIENT
  Sex: Female
  Weight: 51.756 kg

DRUGS (1)
  1. ACCUTANE [Suspect]
     Indication: ACNE
     Route: 065
     Dates: start: 20010101, end: 20020101

REACTIONS (6)
  - COLITIS ISCHAEMIC [None]
  - COLITIS [None]
  - RECTAL HAEMORRHAGE [None]
  - ANXIETY [None]
  - COLITIS ULCERATIVE [None]
  - ABDOMINAL PAIN UPPER [None]
